FAERS Safety Report 6369943-6 (Version None)
Quarter: 2009Q3

REPORT INFORMATION
  Report Type: 
  Country: None (occurrence: None)
  Receive Date: 20090923
  Receipt Date: 20070827
  Transmission Date: 20100115
  Serious: No
  Sender: FDA-Public Use
  Company Number: US-ASTRAZENECA-2006UW08245

PATIENT
  Age: 11517 Day
  Sex: Female
  Weight: 65.8 kg

DRUGS (11)
  1. SEROQUEL [Suspect]
     Indication: SCHIZOPHRENIA
     Route: 048
     Dates: start: 19970101, end: 20010101
  2. RISPERDAL [Concomitant]
     Dates: start: 19931101
  3. ZYPREXA [Concomitant]
     Dates: start: 19931101
  4. PROZAC [Concomitant]
  5. DEPAKOTE [Concomitant]
  6. ULTRAM [Concomitant]
  7. LUPRON [Concomitant]
  8. DIFLUCAN [Concomitant]
  9. PROVENTIL-HFA [Concomitant]
  10. TRIVORA-21 [Concomitant]
  11. SPRINTEC [Concomitant]

REACTIONS (27)
  - ABDOMINAL PAIN [None]
  - ANXIETY [None]
  - CONSTIPATION [None]
  - COUGH [None]
  - DEPRESSION [None]
  - DIABETES MELLITUS [None]
  - DIARRHOEA [None]
  - DIZZINESS [None]
  - DYSMENORRHOEA [None]
  - DYSPAREUNIA [None]
  - EAR PAIN [None]
  - ENDOMETRIOSIS [None]
  - FATIGUE [None]
  - HAEMORRHOIDS [None]
  - IRRITABLE BOWEL SYNDROME [None]
  - NECK PAIN [None]
  - OROPHARYNGEAL PAIN [None]
  - PELVIC PAIN [None]
  - POLYMENORRHOEA [None]
  - PYREXIA [None]
  - SINUS HEADACHE [None]
  - STRESS URINARY INCONTINENCE [None]
  - UPPER RESPIRATORY TRACT INFECTION [None]
  - URINARY INCONTINENCE [None]
  - VERTIGO [None]
  - VIRAL LABYRINTHITIS [None]
  - VULVOVAGINAL PRURITUS [None]
